FAERS Safety Report 16171222 (Version 5)
Quarter: 2019Q4

REPORT INFORMATION
  Report Type: Report from Study
  Country: US (occurrence: US)
  Receive Date: 20190408
  Receipt Date: 20191126
  Transmission Date: 20200122
  Serious: No
  Sender: FDA-Public Use
  Company Number: US-SA-2019SA091090

PATIENT
  Age: 38 Year
  Sex: Female
  Weight: 114.88 kg

DRUGS (13)
  1. DUPILUMAB [Suspect]
     Active Substance: DUPILUMAB
     Indication: DERMATITIS ATOPIC
     Dosage: 300 MG, QOW
     Route: 058
     Dates: start: 20190214
  2. PERMETHRIN. [Concomitant]
     Active Substance: PERMETHRIN
     Dosage: UNK
  3. DUPILUMAB [Suspect]
     Active Substance: DUPILUMAB
     Indication: ASTHMA
     Dosage: 600 MG, 1X
     Dates: start: 20190328, end: 20190328
  4. ADVAIR HFA [Concomitant]
     Active Substance: FLUTICASONE PROPIONATE\SALMETEROL XINAFOATE
     Dosage: UNK, UNK
     Route: 065
  5. SINGULAIR [Concomitant]
     Active Substance: MONTELUKAST SODIUM
     Dosage: UNK
  6. VITAMIN D3 [Concomitant]
     Active Substance: CHOLECALCIFEROL
     Dosage: UNK
  7. CLOBETASOL E [Concomitant]
     Dosage: UNK
  8. BUPROPION. [Concomitant]
     Active Substance: BUPROPION
     Dosage: UNK
  9. ALBUTEROL SULFATE. [Concomitant]
     Active Substance: ALBUTEROL SULFATE
     Dosage: UNK
  10. PROVENTIL HFA [Concomitant]
     Active Substance: ALBUTEROL SULFATE
     Dosage: 90 UG
     Route: 065
  11. TRIAMCINOLONE ACETONIDE. [Concomitant]
     Active Substance: TRIAMCINOLONE ACETONIDE
     Dosage: UNK
  12. RANITIDINE HCL [Concomitant]
     Active Substance: RANITIDINE HYDROCHLORIDE
     Dosage: UNK
  13. ZYRTEC [Concomitant]
     Active Substance: CETIRIZINE HYDROCHLORIDE
     Dosage: UNK

REACTIONS (6)
  - Product dose omission [Unknown]
  - Injection site pain [Unknown]
  - Oropharyngeal pain [Unknown]
  - Skin irritation [Unknown]
  - Product dose omission [Unknown]
  - Headache [Unknown]

NARRATIVE: CASE EVENT DATE: 20190707
